FAERS Safety Report 19369702 (Version 1)
Quarter: 2021Q2

REPORT INFORMATION
  Report Type: Spontaneous
  Country: US (occurrence: US)
  Receive Date: 20210602
  Receipt Date: 20210602
  Transmission Date: 20210717
  Serious: No
  Sender: FDA-Public Use
  Company Number: US-ROCHE-2748821

PATIENT
  Sex: Male
  Weight: 86.71 kg

DRUGS (1)
  1. OCREVUS [Suspect]
     Active Substance: OCRELIZUMAB
     Indication: SECONDARY PROGRESSIVE MULTIPLE SCLEROSIS
     Dosage: EVERY 6 MONTHS ;ONGOING: YES
     Route: 042
     Dates: start: 2019

REACTIONS (1)
  - Pain [Not Recovered/Not Resolved]
